FAERS Safety Report 24690618 (Version 1)
Quarter: 2024Q4

REPORT INFORMATION
  Report Type: Spontaneous
  Country: FR (occurrence: FR)
  Receive Date: 20241203
  Receipt Date: 20241203
  Transmission Date: 20250114
  Serious: Yes (Other)
  Sender: TEVA
  Company Number: None

PATIENT
  Age: 77 Year
  Sex: Male
  Weight: 97 kg

DRUGS (1)
  1. LEVOFLOXACIN [Suspect]
     Active Substance: LEVOFLOXACIN
     Indication: Arthritis infective
     Route: 048
     Dates: start: 20241024, end: 20241026

REACTIONS (1)
  - Lip oedema [Recovered/Resolved]

NARRATIVE: CASE EVENT DATE: 20241025
